FAERS Safety Report 8069970-7 (Version None)
Quarter: 2012Q1

REPORT INFORMATION
  Report Type: 
  Country: None (occurrence: None)
  Receive Date: 20120119
  Receipt Date: 20120104
  Transmission Date: 20120608
  Serious: Yes (Other)
  Sender: FDA-Public Use
  Company Number: AUR-APL-2012-00459

PATIENT
  Age: 75 Year
  Sex: Male
  Weight: 90.7 kg

DRUGS (5)
  1. ATENOLOL [Suspect]
     Indication: HYPERTENSION
     Dosage: (50 MG, 1 D),
  2. NORVASC [Suspect]
     Indication: HYPERTENSION
     Dosage: (20 MG, 1 D),
  3. ACCUPRIL [Suspect]
     Indication: HYPERTENSION
     Dosage: (20 MG, 1 D),
  4. LISINOPRIL [Suspect]
     Indication: HYPERTENSION
     Dosage: (20 MG, 1 D),
  5. VIAGRA [Suspect]
     Indication: ERECTILE DYSFUNCTION
     Dosage: (50 MG, ONE TO TWO TIMES A WEEK),

REACTIONS (2)
  - DEMENTIA ALZHEIMER'S TYPE [None]
  - ERECTILE DYSFUNCTION [None]
